FAERS Safety Report 7795140-3 (Version None)
Quarter: 2011Q4

REPORT INFORMATION
  Report Type: 
  Country: None (occurrence: None)
  Receive Date: 20111004
  Receipt Date: 20110928
  Transmission Date: 20120403
  Serious: Yes (Life-Threatening)
  Sender: FDA-Public Use
  Company Number: FR-SANOFI-AVENTIS-2011SA063376

PATIENT
  Age: 56 Year
  Sex: Female

DRUGS (3)
  1. LOVENOX [Suspect]
     Route: 058
     Dates: start: 20110311, end: 20110324
  2. KEPPRA [Suspect]
     Dosage: DOSE:100 MILLIGRAM(S)/MILLILITRE
     Route: 042
     Dates: start: 20110318, end: 20110324
  3. LASIX [Suspect]
     Dosage: DOSE:20 MILLIGRAM(S)/MILLILITRE
     Route: 042
     Dates: start: 20110319, end: 20110324

REACTIONS (1)
  - AGRANULOCYTOSIS [None]
